FAERS Safety Report 15998981 (Version 2)
Quarter: 2021Q4

REPORT INFORMATION
  Report Type: Spontaneous
  Country: US (occurrence: US)
  Receive Date: 20190223
  Receipt Date: 20211123
  Transmission Date: 20220303
  Serious: Yes (Other)
  Sender: FDA-Public Use
  Company Number: PHEH2019US008069

PATIENT
  Age: 72 Year
  Sex: Male

DRUGS (1)
  1. TASIGNA [Suspect]
     Active Substance: NILOTINIB
     Indication: Chronic myeloid leukaemia
     Dosage: UNK UNK, BID
     Route: 048
     Dates: start: 2010, end: 201604

REACTIONS (13)
  - Pulmonary valve incompetence [Unknown]
  - Mitral valve incompetence [Unknown]
  - Tricuspid valve incompetence [Unknown]
  - Left ventricular hypertrophy [Unknown]
  - Myocardial infarction [Unknown]
  - Coronary artery disease [Unknown]
  - Coronary artery occlusion [Unknown]
  - Injury [Unknown]
  - Peripheral arterial occlusive disease [Unknown]
  - Arteriosclerosis [Unknown]
  - Anxiety [Unknown]
  - Emotional distress [Unknown]
  - Pain [Unknown]

NARRATIVE: CASE EVENT DATE: 20160401
